FAERS Safety Report 12523046 (Version 2)
Quarter: 2016Q3

REPORT INFORMATION
  Report Type: Report from Study
  Country: IL (occurrence: IL)
  Receive Date: 20160701
  Receipt Date: 20160830
  Transmission Date: 20161109
  Serious: Yes (Death, Hospitalization, Other)
  Sender: FDA-Public Use
  Company Number: PHHY2015IL018134

PATIENT
  Age: 25 Year
  Sex: Male
  Weight: 51 kg

DRUGS (3)
  1. EXJADE [Suspect]
     Active Substance: DEFERASIROX
     Indication: THALASSAEMIA BETA
     Dosage: 2000 MG, QD
     Route: 048
     Dates: start: 20070101
  2. DESFERAL [Suspect]
     Active Substance: DEFEROXAMINE MESYLATE
     Indication: PRODUCT USED FOR UNKNOWN INDICATION
     Dosage: DOES NOT TAKE EVERY DAY
     Route: 065
     Dates: start: 201310
  3. EXJADE [Suspect]
     Active Substance: DEFERASIROX
     Indication: HAEMOGLOBINOPATHY

REACTIONS (6)
  - Death [Fatal]
  - Arrhythmia [Recovering/Resolving]
  - Pulse abnormal [Unknown]
  - Cardiac failure [Unknown]
  - Heart rate increased [Unknown]
  - Iron overload [Not Recovered/Not Resolved]

NARRATIVE: CASE EVENT DATE: 2014
